FAERS Safety Report 5752377-2 (Version None)
Quarter: 2008Q2

REPORT INFORMATION
  Report Type: 
  Country: None (occurrence: None)
  Receive Date: 20080529
  Receipt Date: 20080514
  Transmission Date: 20081010
  Serious: Yes (Congenital Anomaly)
  Sender: FDA-Public Use
  Company Number: A0687242A

PATIENT
  Sex: Female

DRUGS (1)
  1. PAXIL [Suspect]
     Indication: DEPRESSION
     Dosage: 60MG PER DAY
     Dates: start: 19980101, end: 20050101

REACTIONS (6)
  - CONGENITAL ANOMALY [None]
  - DRUG EXPOSURE DURING PREGNANCY [None]
  - HEART DISEASE CONGENITAL [None]
  - MULTIPLE CONGENITAL ABNORMALITIES [None]
  - MUSCULOSKELETAL DISCOMFORT [None]
  - SPINE MALFORMATION [None]
